FAERS Safety Report 14639904 (Version 1)
Quarter: 2018Q1

REPORT INFORMATION
  Report Type: Spontaneous
  Country: US (occurrence: US)
  Receive Date: 20180315
  Receipt Date: 20180315
  Transmission Date: 20180509
  Serious: No
  Sender: FDA-Public Use
  Company Number: US-BAYER-2018-046844

PATIENT
  Sex: Female

DRUGS (18)
  1. BIOTIN [Concomitant]
     Active Substance: BIOTIN
  2. MAGNESIUM [Concomitant]
     Active Substance: MAGNESIUM
  3. OXYBUTYNIN. [Concomitant]
     Active Substance: OXYBUTYNIN CHLORIDE
  4. EXCEDRIN [Concomitant]
     Active Substance: ACETAMINOPHEN\ASPIRIN\CAFFEINE
  5. FISH OIL [Concomitant]
     Active Substance: FISH OIL
  6. BACLOFEN. [Concomitant]
     Active Substance: BACLOFEN
  7. MECLIZINE HCL [Concomitant]
     Active Substance: MECLIZINE HYDROCHLORIDE
  8. BETASERON [Suspect]
     Active Substance: INTERFERON BETA-1B
     Indication: MULTIPLE SCLEROSIS
     Dosage: 0.25 MG, QOD
     Route: 058
  9. VITAMIN K2 [Concomitant]
     Active Substance: MENAQUINONE 6
  10. TIZANIDINE. [Concomitant]
     Active Substance: TIZANIDINE
  11. CELEBREX [Concomitant]
     Active Substance: CELECOXIB
  12. VITAMIN D3 [Concomitant]
     Active Substance: CHOLECALCIFEROL
  13. AMPYRA [Concomitant]
     Active Substance: DALFAMPRIDINE
  14. OLMESARTAN [Concomitant]
     Active Substance: OLMESARTAN
  15. MULTIVITAMIN [Concomitant]
     Active Substance: VITAMINS
  16. TURMERIC [Concomitant]
     Active Substance: HERBALS\TURMERIC
  17. VITAMIN B12 [Concomitant]
     Active Substance: CYANOCOBALAMIN
  18. OMEPRAZOLE. [Concomitant]
     Active Substance: OMEPRAZOLE

REACTIONS (3)
  - Injection site erythema [Not Recovered/Not Resolved]
  - Paraesthesia [Not Recovered/Not Resolved]
  - Gait disturbance [Not Recovered/Not Resolved]
